FAERS Safety Report 8599545-2 (Version None)
Quarter: 2012Q3

REPORT INFORMATION
  Report Type: 
  Country: None (occurrence: None)
  Receive Date: 20120816
  Receipt Date: 20120814
  Transmission Date: 20120928
  Serious: Yes (Other)
  Sender: FDA-Public Use
  Company Number: CHPA2012US018151

PATIENT
  Age: 82 Year
  Sex: Female

DRUGS (2)
  1. CLINDAMYCIN [Suspect]
     Dosage: 300 MG
  2. VOLTAREN [Suspect]
     Indication: PAIN
     Dosage: A LITTLE ON HAND APPLIED
     Route: 061

REACTIONS (5)
  - WRONG TECHNIQUE IN DRUG USAGE PROCESS [None]
  - DRUG ADMINISTERED AT INAPPROPRIATE SITE [None]
  - RASH PRURITIC [None]
  - THERAPEUTIC RESPONSE UNEXPECTED [None]
  - ANIMAL BITE [None]
